FAERS Safety Report 5730289-8 (Version None)
Quarter: 2008Q2

REPORT INFORMATION
  Report Type: 
  Country: None (occurrence: None)
  Receive Date: 20080505
  Receipt Date: 20080505
  Transmission Date: 20081010
  Serious: Yes (Death, Life-Threatening, Hospitalization)
  Sender: FDA-Public Use
  Company Number: None

PATIENT
  Age: 91 Year
  Sex: Female
  Weight: 55.7924 kg

DRUGS (4)
  1. DIGITEK 0.125MG-DIGOXIN- BERTEK [Suspect]
     Indication: CARDIAC FAILURE
     Dosage: 1 TABLET BY MOUTH EVERY OTHER DAY
     Dates: start: 20060201, end: 20080406
  2. DIGITEK 0.125MG-DIGOXIN- BERTEK [Suspect]
     Indication: HEART RATE IRREGULAR
     Dosage: 1 TABLET BY MOUTH EVERY OTHER DAY
     Dates: start: 20060201, end: 20080406
  3. DIGITEK 0.125MG-DIGOXIN- BERTEK [Suspect]
     Indication: CARDIAC FAILURE
     Dosage: 1 TABLET BY MOUTH EVERY OTHER DAY
     Dates: start: 20060201, end: 20080406
  4. DIGITEK 0.125MG-DIGOXIN- BERTEK [Suspect]
     Indication: HEART RATE IRREGULAR
     Dosage: 1 TABLET BY MOUTH EVERY OTHER DAY
     Dates: start: 20060201, end: 20080406

REACTIONS (5)
  - CEREBROVASCULAR ACCIDENT [None]
  - DYSPNOEA [None]
  - FEELING ABNORMAL [None]
  - THERAPEUTIC AGENT TOXICITY [None]
  - VOMITING [None]
